FAERS Safety Report 16243444 (Version 2)
Quarter: 2019Q2

REPORT INFORMATION
  Report Type: Report from Study
  Country: JP (occurrence: JP)
  Receive Date: 20190426
  Receipt Date: 20190522
  Transmission Date: 20190711
  Serious: Yes (Death)
  Sender: FDA-Public Use
  Company Number: JP-JT-EVA201900876KERYXP-001

PATIENT
  Age: 63 Year
  Sex: Female
  Weight: 59.8 kg

DRUGS (16)
  1. CALCITRIOL. [Concomitant]
     Active Substance: CALCITRIOL
     Indication: HYPERPARATHYROIDISM SECONDARY
     Dosage: 0.25 MICROGRAM, QD
     Route: 048
     Dates: start: 20150310, end: 20170826
  2. MIRCERA [Concomitant]
     Active Substance: METHOXY POLYETHYLENE GLYCOL-EPOETIN BETA
     Indication: NEPHROGENIC ANAEMIA
     Dosage: 150 MICROGRAM, 3 DOSES IN 3 MONTHS
     Route: 065
  3. MIRCERA [Concomitant]
     Active Substance: METHOXY POLYETHYLENE GLYCOL-EPOETIN BETA
     Dosage: 150 MICROGRAM, 3 DOSES IN 3 MONTHS
     Route: 065
  4. THYRADIN S [Concomitant]
     Active Substance: LEVOTHYROXINE SODIUM
     Dosage: 100 MICROGRAM, QD
     Route: 048
  5. AMALUET [Concomitant]
     Active Substance: AMLODIPINE BESYLATE\ATORVASTATIN CALCIUM
     Dosage: 1 DOSAGE FORM, QD
     Route: 048
  6. VASOLAN                            /00014302/ [Concomitant]
     Active Substance: VERAPAMIL HYDROCHLORIDE
     Dosage: 120 MILLIGRAM, QD
     Route: 048
  7. RIONA [Suspect]
     Active Substance: FERRIC CITRATE ANHYDROUS
     Indication: HYPERPHOSPHATAEMIA
     Dosage: 1500 MILLIGRAM, QD
     Route: 048
     Dates: start: 20170110, end: 20170826
  8. TRAZENTA [Concomitant]
     Active Substance: LINAGLIPTIN
     Dosage: 5 MILLIGRAM, QD
     Route: 048
  9. NU-LOTAN [Concomitant]
     Active Substance: LOSARTAN POTASSIUM
     Dosage: 50 MILLIGRAM, QD
     Route: 048
  10. PROGRAF [Concomitant]
     Active Substance: TACROLIMUS\TACROLIMUS ANHYDROUS
     Dosage: 1 MILLIGRAM, QD
     Route: 048
  11. PREDNISOLONE. [Concomitant]
     Active Substance: PREDNISOLONE
     Dosage: 5 MILLIGRAM, QD
     Route: 048
  12. SELTOUCH [Concomitant]
     Active Substance: FELBINAC
     Dosage: 2 DOSAGE FORM, QD
     Route: 062
  13. LASIX [Concomitant]
     Active Substance: FUROSEMIDE
     Dosage: 20 MILLIGRAM, QD
     Route: 048
  14. SENNOSIDE                          /00571901/ [Concomitant]
     Active Substance: SENNOSIDES A AND B
     Dosage: 12 MILLIGRAM, QD
     Route: 048
  15. KALIAID [Concomitant]
     Active Substance: CALCIUM POLYSTYRENE SULFONATE
     Dosage: 5.17 GRAM, QD
     Route: 048
  16. FEBURIC [Concomitant]
     Active Substance: FEBUXOSTAT
     Dosage: 20 MILLIGRAM, QD
     Route: 048

REACTIONS (1)
  - Death [Fatal]

NARRATIVE: CASE EVENT DATE: 20170826
